FAERS Safety Report 4767391-3 (Version None)
Quarter: 2005Q3

REPORT INFORMATION
  Report Type: 
  Country: None (occurrence: None)
  Receive Date: 20050909
  Receipt Date: 20050824
  Transmission Date: 20060218
  Serious: Yes (Other)
  Sender: FDA-Public Use
  Company Number: 2005BI015947

PATIENT
  Age: 36 Year
  Sex: Male

DRUGS (3)
  1. AVONEX [Suspect]
     Indication: MULTIPLE SCLEROSIS
     Dosage: 30 UG;QW;IM
     Route: 030
     Dates: start: 20001201
  2. AVONEX [Suspect]
     Indication: MULTIPLE SCLEROSIS
     Dosage: 30 UG;QW;IM
     Route: 030
  3. VIOXX [Concomitant]

REACTIONS (4)
  - GRAND MAL CONVULSION [None]
  - JOINT DISLOCATION [None]
  - MOUTH HAEMORRHAGE [None]
  - MUSCLE ATROPHY [None]
